FAERS Safety Report 10205768 (Version 2)
Quarter: 2014Q2

REPORT INFORMATION
  Report Type: Spontaneous
  Country: NL (occurrence: NL)
  Receive Date: 20140530
  Receipt Date: 20140530
  Transmission Date: 20141212
  Serious: Yes (Other)
  Sender: FDA-Public Use
  Company Number: NL-AMGEN INC.-NLDSP2014022234

PATIENT
  Age: 74 Year
  Sex: Male

DRUGS (8)
  1. ARANESP [Suspect]
     Indication: PRODUCT USED FOR UNKNOWN INDICATION
     Dosage: 150 MUG, Q3WK
     Route: 058
     Dates: start: 20140212
  2. ACETYLSALICYLIC ACID [Concomitant]
     Dosage: 80 MG, UNK
  3. CLOPIDROGEL SANDOZ [Concomitant]
     Dosage: 75 MG, UNK
  4. FOSINOPRIL [Concomitant]
     Dosage: 10 MG, UNK
  5. METOPROLOL [Concomitant]
     Dosage: 50 MG, UNK
  6. PANTOPRAZOL [Concomitant]
     Dosage: 40 MG, UNK
  7. PROMOCARD [Concomitant]
     Dosage: 30 MG, UNK
  8. SPIRONOLACTONE [Concomitant]
     Dosage: 25 MG, UNK

REACTIONS (4)
  - Neck pain [Recovered/Resolved]
  - Musculoskeletal pain [Recovered/Resolved]
  - Nausea [Recovered/Resolved]
  - Influenza [Recovered/Resolved]
